FAERS Safety Report 6955564-0 (Version None)
Quarter: 2010Q3

REPORT INFORMATION
  Report Type: 
  Country: None (occurrence: None)
  Receive Date: 20100826
  Receipt Date: 20100826
  Transmission Date: 20110219
  Serious: Yes (Hospitalization)
  Sender: FDA-Public Use
  Company Number: None

PATIENT
  Age: 63 Year
  Sex: Female
  Weight: 93.8946 kg

DRUGS (3)
  1. ACTONEL [Suspect]
     Indication: OSTEOPENIA
     Dosage: PO
     Route: 048
     Dates: start: 20020605, end: 20060601
  2. ACTONEL [Suspect]
     Indication: STRESS FRACTURE
     Dosage: PO
     Route: 048
     Dates: start: 20020605, end: 20060601
  3. BONIVA [Suspect]
     Dosage: 150MG MONTHLY PO
     Route: 048
     Dates: start: 20060622, end: 20100101

REACTIONS (3)
  - BONE SCAN ABNORMAL [None]
  - FEMUR FRACTURE [None]
  - PAIN IN EXTREMITY [None]
